FAERS Safety Report 10995445 (Version 2)
Quarter: 2015Q2

REPORT INFORMATION
  Report Type: Spontaneous
  Country: US (occurrence: US)
  Receive Date: 20150407
  Receipt Date: 20150407
  Transmission Date: 20150821
  Serious: No
  Sender: FDA-Public Use
  Company Number: US-SA-2014SA153234

PATIENT
  Age: 79 Year
  Sex: Male

DRUGS (1)
  1. ALLEGRA-D [Suspect]
     Active Substance: FEXOFENADINE\PSEUDOEPHEDRINE
     Indication: NASAL CONGESTION
     Dosage: DOSAGE:60 MG/120 MG?PRODUCT START DATE:1 WEEK
     Route: 048

REACTIONS (1)
  - Sleep disorder [Not Recovered/Not Resolved]
